FAERS Safety Report 6869327-8 (Version None)
Quarter: 2010Q3

REPORT INFORMATION
  Report Type: 
  Country: None (occurrence: None)
  Receive Date: 20100722
  Receipt Date: 20100722
  Transmission Date: 20110219
  Serious: Yes (Other)
  Sender: FDA-Public Use
  Company Number: None

PATIENT
  Sex: Female

DRUGS (3)
  1. BENAZEPRIL HYDROCHLORIDE [Suspect]
  2. NORVASC [Concomitant]
  3. VERAPAMIL [Concomitant]

REACTIONS (1)
  - COUGH [None]
